FAERS Safety Report 21250285 (Version 1)
Quarter: 2022Q3

REPORT INFORMATION
  Report Type: Spontaneous
  Country: US (occurrence: None)
  Receive Date: 20220823
  Receipt Date: 20220823
  Transmission Date: 20221027
  Serious: Yes (Other)
  Sender: FDA-Public Use
  Company Number: None

PATIENT
  Sex: Female

DRUGS (8)
  1. XELJANZ XR [Suspect]
     Active Substance: TOFACITINIB CITRATE
  2. AZITHROMYCIN [Concomitant]
     Active Substance: AZITHROMYCIN
  3. FLUCONAZOLE [Concomitant]
     Active Substance: FLUCONAZOLE
  4. FLUCONAZOLE [Concomitant]
     Active Substance: FLUCONAZOLE
  5. NYSTATIN [Concomitant]
     Active Substance: NYSTATIN
  6. ORENCIA CLCK INJ [Concomitant]
  7. PREDNISONE [Concomitant]
     Active Substance: PREDNISONE
  8. PREDNISONE [Concomitant]
     Active Substance: PREDNISONE

REACTIONS (4)
  - Condition aggravated [None]
  - Pain [None]
  - Surgery [None]
  - Therapy interrupted [None]
